FAERS Safety Report 23491088 (Version 3)
Quarter: 2024Q1

REPORT INFORMATION
  Report Type: Spontaneous
  Country: ES (occurrence: ES)
  Receive Date: 20240207
  Receipt Date: 20240305
  Transmission Date: 20240409
  Serious: Yes (Death, Hospitalization, Other)
  Sender: FDA-Public Use
  Company Number: ES-HALEON-ESCH2024EME006670

PATIENT

DRUGS (6)
  1. ACETAMINOPHEN [Suspect]
     Active Substance: ACETAMINOPHEN
     Indication: Product used for unknown indication
     Dosage: UNK
  2. DICLOFENAC [Suspect]
     Active Substance: DICLOFENAC
     Indication: Product used for unknown indication
     Dosage: UNK
  3. AMOXICILLIN [Suspect]
     Active Substance: AMOXICILLIN
     Indication: Product used for unknown indication
     Dosage: UNK
  4. LORMETAZEPAM [Suspect]
     Active Substance: LORMETAZEPAM
     Indication: Product used for unknown indication
     Dosage: UNK
  5. DEXKETOPROFEN [Suspect]
     Active Substance: DEXKETOPROFEN
     Indication: Product used for unknown indication
     Dosage: UNK
  6. CLORAZEPATE DIPOTASSIUM [Suspect]
     Active Substance: CLORAZEPATE DIPOTASSIUM
     Indication: Product used for unknown indication
     Dosage: UNK

REACTIONS (15)
  - Toxicity to various agents [Fatal]
  - Acute hepatic failure [Fatal]
  - Renal failure [Fatal]
  - Shock [Fatal]
  - Metabolic acidosis [Fatal]
  - Liver injury [Fatal]
  - Coagulopathy [Fatal]
  - Pancreatic failure [Fatal]
  - Hyperglycaemia [Fatal]
  - Hypoperfusion [Fatal]
  - Haemodynamic instability [Fatal]
  - Acute kidney injury [Unknown]
  - Tachypnoea [Unknown]
  - Dehydration [Unknown]
  - General physical health deterioration [Unknown]
